FAERS Safety Report 5083172-8 (Version None)
Quarter: 2006Q3

REPORT INFORMATION
  Report Type: 
  Country: None (occurrence: None)
  Receive Date: 20060818
  Receipt Date: 20060810
  Transmission Date: 20061208
  Serious: Yes (Hospitalization, Other)
  Sender: FDA-Public Use
  Company Number: PHEH2006US10245

PATIENT
  Age: 60 Year
  Sex: Male

DRUGS (4)
  1. EXJADE [Suspect]
     Dosage: 1500 MG, QD
     Route: 048
     Dates: start: 20060101, end: 20060801
  2. EXJADE [Suspect]
     Dates: start: 20060805
  3. DESFERAL [Concomitant]
  4. VIDAZA [Concomitant]
     Dates: start: 20051201, end: 20060401

REACTIONS (11)
  - BLOOD CREATININE INCREASED [None]
  - CARDIAC FAILURE [None]
  - CHROMATURIA [None]
  - FLANK PAIN [None]
  - FLUID OVERLOAD [None]
  - GENERALISED OEDEMA [None]
  - HAEMATURIA [None]
  - HAEMOGLOBIN DECREASED [None]
  - HYPERTENSION [None]
  - RENAL IMPAIRMENT [None]
  - VOMITING [None]
